FAERS Safety Report 8808864 (Version 1)
Quarter: 2012Q4

REPORT INFORMATION
  Report Type: Spontaneous
  Country: US (occurrence: None)
  Receive Date: 20120921
  Receipt Date: 20120921
  Transmission Date: 20130627
  Serious: Yes (Life-Threatening, Disabling, Other)
  Sender: FDA-Public Use
  Company Number: None

PATIENT
  Age: 49 Year
  Sex: Female
  Weight: 77.11 kg

DRUGS (1)
  1. LAMICTAL [Suspect]
     Indication: DEPRESSION
     Dates: start: 20120523, end: 20120917

REACTIONS (5)
  - Skin lesion [None]
  - Blister [None]
  - Wound [None]
  - Peripheral coldness [None]
  - Fear of disease [None]
